FAERS Safety Report 14705613 (Version 1)
Quarter: 2018Q2

REPORT INFORMATION
  Report Type: Spontaneous
  Country: GR (occurrence: GR)
  Receive Date: 20180402
  Receipt Date: 20180402
  Transmission Date: 20180711
  Serious: Yes (Hospitalization)
  Sender: FDA-Public Use
  Company Number: PHHY2018GR026836

PATIENT
  Age: 74 Year
  Sex: Male

DRUGS (3)
  1. CALCIORAL [Concomitant]
     Indication: PRODUCT USED FOR UNKNOWN INDICATION
     Route: 065
  2. VOTRIENT [Suspect]
     Active Substance: PAZOPANIB HYDROCHLORIDE
     Indication: RENAL NEOPLASM
     Dosage: 800 MG, QD
     Route: 065
     Dates: start: 20170523
  3. XGEVA [Concomitant]
     Active Substance: DENOSUMAB
     Indication: PRODUCT USED FOR UNKNOWN INDICATION
     Route: 065

REACTIONS (10)
  - Dyspnoea [Unknown]
  - Product use in unapproved indication [Unknown]
  - Dermatitis psoriasiform [Unknown]
  - Lymphadenopathy [Unknown]
  - Lymphatic disorder [Unknown]
  - Bone lesion [Unknown]
  - Rash [Unknown]
  - Pneumonitis [Unknown]
  - General physical health deterioration [Unknown]
  - Hypoxia [Not Recovered/Not Resolved]

NARRATIVE: CASE EVENT DATE: 20180213
